FAERS Safety Report 8800650 (Version 2)
Quarter: 2012Q4

REPORT INFORMATION
  Report Type: 
  Country: BR (occurrence: BR)
  Receive Date: 20120921
  Receipt Date: 20120927
  Transmission Date: 20130627
  Serious: Yes (Death, Hospitalization)
  Sender: FDA-Public Use
  Company Number: BR-B.I. PHARMACEUTICALS,INC./RIDGEFIELD-2012-BR-01078BR

PATIENT
  Age: 80 Year
  Sex: Male

DRUGS (3)
  1. TRAYENTA [Suspect]
     Indication: DIABETES MELLITUS
     Dosage: 5 mg
     Route: 048
     Dates: end: 20120825
  2. GENUXAL [Concomitant]
     Indication: PROSTATE CANCER
  3. ARADOIS [Concomitant]
     Indication: HYPERTENSION

REACTIONS (2)
  - Respiratory failure [Fatal]
  - Coma [Unknown]
